FAERS Safety Report 19451739 (Version 1)
Quarter: 2021Q2

REPORT INFORMATION
  Report Type: Report from Study
  Country: CA (occurrence: CA)
  Receive Date: 20210623
  Receipt Date: 20210623
  Transmission Date: 20210717
  Serious: Yes (Death)
  Sender: FDA-Public Use
  Company Number: CA-TAIHO ONCOLOGY  INC-EU-2021-01972

PATIENT
  Age: 69 Year
  Sex: Female
  Weight: 28.42 kg

DRUGS (1)
  1. LONSURF [Suspect]
     Active Substance: TIPIRACIL HYDROCHLORIDE\TRIFLURIDINE
     Indication: COLORECTAL CANCER METASTATIC
     Dosage: DOSE, FREQUENCY AND CYCLE UNKNOWN
     Route: 048
     Dates: start: 20210517, end: 202106

REACTIONS (1)
  - Death [Fatal]

NARRATIVE: CASE EVENT DATE: 202106
